FAERS Safety Report 5587020-9 (Version None)
Quarter: 2008Q1

REPORT INFORMATION
  Report Type: 
  Country: None (occurrence: None)
  Receive Date: 20080110
  Receipt Date: 20080103
  Transmission Date: 20080703
  Serious: Yes (Life-Threatening)
  Sender: FDA-Public Use
  Company Number: B0301665A

PATIENT
  Age: 20 Year
  Sex: Female

DRUGS (3)
  1. SEROXAT [Suspect]
     Indication: DEPRESSION
     Route: 065
     Dates: start: 20011123, end: 20020610
  2. ALCOHOL [Suspect]
     Route: 065
  3. MICROGYNON [Concomitant]
     Route: 065

REACTIONS (29)
  - AFFECT LABILITY [None]
  - AGGRESSION [None]
  - AGITATION [None]
  - AKATHISIA [None]
  - ALCOHOL INTERACTION [None]
  - ANXIETY [None]
  - COORDINATION ABNORMAL [None]
  - CRYING [None]
  - DERMATITIS [None]
  - DIZZINESS [None]
  - GAIT DISTURBANCE [None]
  - HALLUCINATION, AUDITORY [None]
  - HYPERHIDROSIS [None]
  - IRRITABILITY [None]
  - MOOD SWINGS [None]
  - NAUSEA [None]
  - NERVOUSNESS [None]
  - NIGHTMARE [None]
  - PARAESTHESIA [None]
  - PERSONALITY CHANGE [None]
  - PHYSICAL ASSAULT [None]
  - RASH [None]
  - RESTLESSNESS [None]
  - SELF-INJURIOUS IDEATION [None]
  - SOMNOLENCE [None]
  - SUICIDAL IDEATION [None]
  - TREMOR [None]
  - VOMITING [None]
  - WITHDRAWAL SYNDROME [None]
